FAERS Safety Report 6045676-0 (Version None)
Quarter: 2009Q1

REPORT INFORMATION
  Report Type: 
  Country: None (occurrence: None)
  Receive Date: 20090121
  Receipt Date: 20090114
  Transmission Date: 20090719
  Serious: Yes (Hospitalization)
  Sender: FDA-Public Use
  Company Number: AU-SANOFI-SYNTHELABO-A01200816305

PATIENT
  Sex: Female
  Weight: 45 kg

DRUGS (13)
  1. MICARDIS [Concomitant]
     Indication: HYPERTENSION
     Route: 048
  2. MICARDIS [Concomitant]
     Indication: CARDIAC FAILURE CONGESTIVE
     Route: 048
  3. ISOPTIN SR [Concomitant]
     Indication: HYPERTENSION
     Route: 048
  4. KETOFEN [Concomitant]
     Indication: DRUG USE FOR UNKNOWN INDICATION
     Dosage: UNK
     Route: 065
  5. ZASTEN [Concomitant]
     Indication: DRUG USE FOR UNKNOWN INDICATION
     Dosage: UNK
     Route: 065
  6. ARIMIDEX [Concomitant]
     Indication: BREAST CANCER
     Route: 048
  7. ACE [Concomitant]
     Indication: DRUG USE FOR UNKNOWN INDICATION
     Dosage: UNK
     Route: 065
  8. SELENIUM [Concomitant]
     Indication: DRUG USE FOR UNKNOWN INDICATION
     Dosage: UNK
     Route: 065
  9. CALCIUM [Concomitant]
     Indication: OSTEOPOROSIS
     Dosage: UNK
     Route: 048
  10. VITAMIN D [Concomitant]
     Indication: OSTEOPOROSIS
     Dosage: UNK
     Route: 048
  11. DIURETICS [Concomitant]
     Indication: DRUG USE FOR UNKNOWN INDICATION
     Dosage: UNK
     Route: 065
  12. LASIX [Concomitant]
     Indication: DRUG USE FOR UNKNOWN INDICATION
     Dosage: UNK
     Route: 065
  13. PLAVIX [Suspect]
     Indication: TRANSIENT ISCHAEMIC ATTACK
     Route: 048
     Dates: start: 20060101

REACTIONS (3)
  - AORTIC ANEURYSM [None]
  - CARDIAC FAILURE CONGESTIVE [None]
  - PNEUMONIA [None]
